FAERS Safety Report 8848245 (Version 1)
Quarter: 2012Q4

REPORT INFORMATION
  Report Type: 
  Country: US (occurrence: US)
  Receive Date: 20121018
  Receipt Date: 20121018
  Transmission Date: 20130627
  Serious: No
  Sender: FDA-Public Use
  Company Number: US-TEVA-364162USA

PATIENT
  Age: 81 Year
  Sex: Female

DRUGS (2)
  1. NUVIGIL [Suspect]
     Indication: SOMNOLENCE
     Route: 048
  2. PROVIGIL [Suspect]
     Indication: POOR QUALITY SLEEP
     Dosage: QD
     Route: 048
     Dates: start: 20120215

REACTIONS (2)
  - Conjunctivitis [Not Recovered/Not Resolved]
  - Off label use [Unknown]
